FAERS Safety Report 7757738-8 (Version None)
Quarter: 2011Q3

REPORT INFORMATION
  Report Type: 
  Country: None (occurrence: None)
  Receive Date: 20110916
  Receipt Date: 20110117
  Transmission Date: 20111222
  Serious: No
  Sender: FDA-Public Use
  Company Number: US-ALLERGAN-1100671US

PATIENT
  Sex: Female

DRUGS (1)
  1. ACUVAIL [Suspect]
     Indication: PRODUCT USED FOR UNKNOWN INDICATION
     Dosage: 1 GTT, BID
     Dates: start: 20101214, end: 20110114

REACTIONS (3)
  - EYE PAIN [None]
  - EPISTAXIS [None]
  - VISUAL ACUITY REDUCED [None]
